FAERS Safety Report 7610241-8 (Version None)
Quarter: 2011Q3

REPORT INFORMATION
  Report Type: 
  Country: None (occurrence: None)
  Receive Date: 20110706
  Receipt Date: 20110627
  Transmission Date: 20111222
  Serious: Yes (Hospitalization)
  Sender: FDA-Public Use
  Company Number: 2010SP064581

PATIENT
  Age: 50 Year
  Sex: Female

DRUGS (3)
  1. ABT-888 (INVESTIGATIONAL DRUG) [Suspect]
     Indication: OVARIAN CANCER
     Dosage: 40 MG, BID, PO
     Route: 048
  2. TAXOL W/CARBOPLATIN [Concomitant]
  3. TEMOZOLOMIDE [Suspect]
     Indication: OVARIAN CANCER
     Dosage: PO
     Route: 048

REACTIONS (1)
  - FEBRILE NEUTROPENIA [None]
